FAERS Safety Report 12603621 (Version 1)
Quarter: 2016Q3

REPORT INFORMATION
  Report Type: Spontaneous
  Country: CA (occurrence: CA)
  Receive Date: 20160728
  Receipt Date: 20160728
  Transmission Date: 20161109
  Serious: Yes (Other)
  Sender: FDA-Public Use
  Company Number: CA-PFIZER INC-2016361753

PATIENT
  Age: 74 Year
  Sex: Male

DRUGS (1)
  1. GLYCINE. [Suspect]
     Active Substance: GLYCINE
     Dosage: UNK

REACTIONS (2)
  - Blindness transient [Recovered/Resolved]
  - Pupillary reflex impaired [Recovered/Resolved]
